APPROVED DRUG PRODUCT: DIAZOXIDE
Active Ingredient: DIAZOXIDE
Strength: 50MG/ML
Dosage Form/Route: SUSPENSION;ORAL
Application: A210799 | Product #001 | TE Code: AB
Applicant: NOVITIUM PHARMA LLC
Approved: Jul 8, 2020 | RLD: No | RS: No | Type: RX